FAERS Safety Report 6531352-4 (Version None)
Quarter: 2010Q1

REPORT INFORMATION
  Report Type: 
  Country: None (occurrence: None)
  Receive Date: 20100108
  Receipt Date: 20090929
  Transmission Date: 20100710
  Serious: No
  Sender: FDA-Public Use
  Company Number: A0809545A

PATIENT
  Age: 53 Year
  Sex: Female

DRUGS (4)
  1. TYKERB [Suspect]
     Indication: BREAST CANCER
     Dosage: 5TAB PER DAY
     Route: 048
     Dates: start: 20090925
  2. VITAMINS [Concomitant]
  3. MINERAL TAB [Concomitant]
  4. UNSPECIFIED MEDICATION [Concomitant]

REACTIONS (4)
  - AGEUSIA [None]
  - CONSTIPATION [None]
  - DECREASED APPETITE [None]
  - NAUSEA [None]
